FAERS Safety Report 21391486 (Version 2)
Quarter: 2022Q4

REPORT INFORMATION
  Report Type: Spontaneous
  Country: CL (occurrence: CL)
  Receive Date: 20220929
  Receipt Date: 20221008
  Transmission Date: 20230112
  Serious: Yes (Death, Disabling)
  Sender: FDA-Public Use
  Company Number: CL-NOVARTISPH-NVSC2022CL220495

PATIENT
  Age: 71 Year
  Sex: Male

DRUGS (1)
  1. GLIVEC [Suspect]
     Active Substance: IMATINIB MESYLATE
     Indication: Gastrointestinal stromal tumour
     Dosage: 400 MG (1X 400 MG TABLET)
     Route: 065

REACTIONS (4)
  - Gastrointestinal stromal tumour [Fatal]
  - Malignant neoplasm progression [Fatal]
  - Fatigue [Unknown]
  - Drug intolerance [Unknown]

NARRATIVE: CASE EVENT DATE: 20220501
